FAERS Safety Report 4931568-4 (Version None)
Quarter: 2006Q1

REPORT INFORMATION
  Report Type: 
  Country: None (occurrence: None)
  Receive Date: 20060303
  Receipt Date: 20060227
  Transmission Date: 20060701
  Serious: Yes (Other)
  Sender: FDA-Public Use
  Company Number: KR-JNJFOC-20060206108

PATIENT
  Sex: Female

DRUGS (8)
  1. GALANTAMINE [Suspect]
     Indication: DEMENTIA ALZHEIMER'S TYPE
     Route: 048
  2. REMINYL [Suspect]
     Route: 048
     Dates: start: 20050601, end: 20050628
  3. REMINYL [Suspect]
     Indication: DEMENTIA ALZHEIMER'S TYPE
     Route: 048
     Dates: start: 20050601, end: 20050628
  4. RISPERIDONE [Concomitant]
     Route: 048
     Dates: start: 20050408
  5. XANAPAM [Concomitant]
     Indication: AGITATION
     Dosage: .5-1 MG DAILY
     Dates: start: 20050408
  6. SULPIDINE [Concomitant]
     Dates: start: 20050420, end: 20051201
  7. SEROQUEL [Concomitant]
     Dates: start: 20050526, end: 20050905
  8. STILNOX [Concomitant]
     Indication: INSOMNIA
     Dates: start: 20050408

REACTIONS (2)
  - BLOOD ALBUMIN DECREASED [None]
  - HAEMOGLOBIN DECREASED [None]
